FAERS Safety Report 9052278 (Version 1)
Quarter: 2013Q1

REPORT INFORMATION
  Report Type: Spontaneous
  Country: GB (occurrence: GB)
  Receive Date: 20130206
  Receipt Date: 20130206
  Transmission Date: 20140127
  Serious: Yes (Death, Other)
  Sender: FDA-Public Use
  Company Number: GB-PFIZER INC-2013048174

PATIENT
  Age: 68 Year
  Sex: Male
  Weight: 115 kg

DRUGS (4)
  1. CHAMPIX [Suspect]
     Indication: SMOKING CESSATION THERAPY
     Dosage: 500 MICROGRAMS - HAD TAKEN ONE DOSE
     Route: 048
     Dates: start: 20130123, end: 20130123
  2. OMEPRAZOLE [Concomitant]
  3. PARACETAMOL [Concomitant]
  4. INDOMETACIN [Concomitant]

REACTIONS (1)
  - Sudden death [Fatal]
